FAERS Safety Report 7984322-3 (Version None)
Quarter: 2011Q4

REPORT INFORMATION
  Report Type: 
  Country: None (occurrence: None)
  Receive Date: 20111216
  Receipt Date: 20111206
  Transmission Date: 20120403
  Serious: Yes (Hospitalization, Disabling)
  Sender: FDA-Public Use
  Company Number: US-JNJFOC-20111002112

PATIENT
  Sex: Female

DRUGS (11)
  1. LEUCOVORIN CALCIUM [Concomitant]
     Route: 065
  2. PREDNISONE [Concomitant]
     Route: 065
  3. CALCIUM W/ VITAMIN D [Concomitant]
     Route: 065
  4. IBUPROFEN [Concomitant]
     Route: 065
  5. METHOTREXATE [Concomitant]
     Indication: PSORIATIC ARTHROPATHY
     Route: 065
     Dates: start: 20050101
  6. PREDNISONE [Concomitant]
     Indication: PSORIATIC ARTHROPATHY
     Route: 065
  7. REMICADE [Suspect]
     Indication: PSORIATIC ARTHROPATHY
     Route: 042
     Dates: start: 20101013, end: 20110711
  8. REMICADE [Suspect]
     Route: 042
     Dates: start: 20110101
  9. AZATHIOPRINE [Suspect]
     Indication: PSORIATIC ARTHROPATHY
     Route: 048
     Dates: start: 20110621, end: 20110817
  10. FOLIC ACID [Concomitant]
     Route: 065
  11. REMICADE [Suspect]
     Route: 042
     Dates: start: 20110101

REACTIONS (5)
  - SYSTEMIC LUPUS ERYTHEMATOSUS [None]
  - TACHYCARDIA [None]
  - PYREXIA [None]
  - HUMAN ANTICHIMERIC ANTIBODY POSITIVE [None]
  - RHEUMATOID ARTHRITIS [None]
